FAERS Safety Report 7000929-4 (Version None)
Quarter: 2010Q3

REPORT INFORMATION
  Report Type: 
  Country: None (occurrence: None)
  Receive Date: 20100920
  Receipt Date: 20100914
  Transmission Date: 20110219
  Serious: Yes (Death, Other)
  Sender: FDA-Public Use
  Company Number: PHHY2010BR61106

PATIENT
  Sex: Female

DRUGS (2)
  1. EXFORGE [Suspect]
     Indication: HYPERTENSION
     Dosage: 1 TABLET (160/5 MG), DAILY
     Route: 048
  2. HYGROTON [Suspect]
     Indication: HYPERTENSION
     Dosage: 1 TABLET (12.5 MG)
     Route: 048

REACTIONS (3)
  - DIARRHOEA [None]
  - INFARCTION [None]
  - PERIPHERAL COLDNESS [None]
